FAERS Safety Report 11204973 (Version 1)
Quarter: 2015Q2

REPORT INFORMATION
  Report Type: Spontaneous
  Country: US (occurrence: None)
  Receive Date: 20150618
  Receipt Date: 20150618
  Transmission Date: 20150821
  Serious: Yes (Life-Threatening, Hospitalization)
  Sender: FDA-Public Use
  Company Number: None

PATIENT
  Age: 86 Year
  Sex: Male

DRUGS (1)
  1. XARELTO [Suspect]
     Active Substance: RIVAROXABAN
     Dosage: 20MG  DAILY  PO?APPROX 1 YEAR
     Route: 048

REACTIONS (2)
  - Faeces discoloured [None]
  - Melaena [None]

NARRATIVE: CASE EVENT DATE: 20150530
